FAERS Safety Report 4897216-7 (Version None)
Quarter: 2006Q1

REPORT INFORMATION
  Report Type: 
  Country: None (occurrence: None)
  Receive Date: 20060127
  Receipt Date: 20060124
  Transmission Date: 20060701
  Serious: Yes (Other)
  Sender: FDA-Public Use
  Company Number: FRWYE329524JAN06

PATIENT
  Age: 38 Year
  Sex: Female

DRUGS (4)
  1. RAPAMUNE [Suspect]
     Indication: PROPHYLAXIS AGAINST TRANSPLANT REJECTION
     Dosage: 4 MG DAILY TOTAL AT THE TIME OF THE EVENT ONSET; ORAL; SEE IMAGE
     Route: 048
     Dates: start: 20041216, end: 20051221
  2. RAPAMUNE [Suspect]
     Indication: PROPHYLAXIS AGAINST TRANSPLANT REJECTION
     Dosage: 4 MG DAILY TOTAL AT THE TIME OF THE EVENT ONSET; ORAL; SEE IMAGE
     Route: 048
     Dates: start: 20051221, end: 20060104
  3. PREDNISONE [Concomitant]
  4. MYCOPHENOLATE MOFETIL          (MYOPHENOLATE MOFETIL) [Concomitant]

REACTIONS (1)
  - KIDNEY TRANSPLANT REJECTION [None]
